FAERS Safety Report 9061420 (Version 1)
Quarter: 2013Q1

REPORT INFORMATION
  Report Type: Spontaneous
  Country: US (occurrence: None)
  Receive Date: 20130211
  Receipt Date: 20130211
  Transmission Date: 20140127
  Serious: Yes (Life-Threatening, Hospitalization)
  Sender: FDA-Public Use
  Company Number: None

PATIENT
  Age: 67 Year
  Sex: Male
  Weight: 107.3 kg

DRUGS (1)
  1. HEPARIN [Suspect]
     Route: 058
     Dates: start: 20130107, end: 20130114

REACTIONS (1)
  - Heparin-induced thrombocytopenia [None]
